FAERS Safety Report 18640034 (Version 1)
Quarter: 2020Q4

REPORT INFORMATION
  Report Type: Spontaneous
  Country: US (occurrence: US)
  Receive Date: 20201220
  Receipt Date: 20201220
  Transmission Date: 20210114
  Serious: No
  Sender: FDA-Public Use
  Company Number: US-PACIRA-202000420

PATIENT

DRUGS (3)
  1. BUPIVACAINE. [Suspect]
     Active Substance: BUPIVACAINE
     Indication: NERVE BLOCK
     Dosage: 20 ML
     Route: 065
  2. EXPAREL [Suspect]
     Active Substance: BUPIVACAINE
     Indication: KNEE ARTHROPLASTY
     Dosage: 20 ML AND 20 ML 0.5%??BUPIVACAINE WITH 0.9% SALINE
     Route: 052
  3. BUPIVACAINE 0.5% [Suspect]
     Active Substance: BUPIVACAINE
     Indication: KNEE ARTHROPLASTY
     Dosage: 20 ML AND 20 ML EXPAREL WITH 0.9% SALINE
     Route: 052

REACTIONS (4)
  - Inappropriate schedule of product administration [Unknown]
  - No adverse event [Unknown]
  - Drug ineffective [Unknown]
  - Off label use [Unknown]
